FAERS Safety Report 23275323 (Version 1)
Quarter: 2023Q4

REPORT INFORMATION
  Report Type: Spontaneous
  Country: US (occurrence: US)
  Receive Date: 20231208
  Receipt Date: 20231208
  Transmission Date: 20240109
  Serious: No
  Sender: FDA-Public Use
  Company Number: US-Ipsen Biopharmaceuticals, Inc.-2023-27191

PATIENT
  Age: 54 Year
  Sex: Female

DRUGS (4)
  1. DYSPORT [Suspect]
     Active Substance: ABOBOTULINUMTOXINA
     Indication: Skin wrinkling
     Dosage: FRONTALIS 40 U, GLABELLA 50 U
     Route: 065
     Dates: start: 20231024, end: 20231024
  2. DYSPORT [Suspect]
     Active Substance: ABOBOTULINUMTOXINA
     Indication: Skin wrinkling
  3. DYSPORT [Suspect]
     Active Substance: ABOBOTULINUMTOXINA
     Indication: Off label use
  4. HYALURONIC ACID\LIDOCAINE [Suspect]
     Active Substance: HYALURONIC ACID\LIDOCAINE
     Indication: Skin wrinkling
     Route: 065
     Dates: start: 20231024, end: 20231024

REACTIONS (3)
  - Off label use [Unknown]
  - Periorbital swelling [Not Recovered/Not Resolved]
  - Product preparation issue [Unknown]

NARRATIVE: CASE EVENT DATE: 20231001
